FAERS Safety Report 6279946-8 (Version None)
Quarter: 2009Q3

REPORT INFORMATION
  Report Type: 
  Country: None (occurrence: None)
  Receive Date: 20090723
  Receipt Date: 20090708
  Transmission Date: 20100115
  Serious: Yes (Disabling)
  Sender: FDA-Public Use
  Company Number: US-SANOFI-SYNTHELABO-A03200901962

PATIENT
  Sex: Male
  Weight: 90.7 kg

DRUGS (2)
  1. PLAVIX [Suspect]
     Indication: TRANSIENT ISCHAEMIC ATTACK
     Route: 048
     Dates: start: 20081201, end: 20090301
  2. SIMVASTATIN [Concomitant]
     Indication: DRUG USE FOR UNKNOWN INDICATION
     Route: 065
     Dates: start: 20040601

REACTIONS (7)
  - AGEUSIA [None]
  - FEELING COLD [None]
  - GAIT DISTURBANCE [None]
  - HYPOAESTHESIA [None]
  - MUSCULAR WEAKNESS [None]
  - SENSORY LOSS [None]
  - VERTIGO [None]
